FAERS Safety Report 5216178-6 (Version None)
Quarter: 2007Q1

REPORT INFORMATION
  Report Type: 
  Country: None (occurrence: None)
  Receive Date: 20070123
  Receipt Date: 20070111
  Transmission Date: 20070707
  Serious: Yes (Hospitalization)
  Sender: FDA-Public Use
  Company Number: BR-PFIZER INC-2006120510

PATIENT
  Sex: Female
  Weight: 54.5 kg

DRUGS (4)
  1. SU-011,248 [Suspect]
     Indication: METASTATIC RENAL CELL CARCINOMA
     Route: 048
     Dates: start: 20060821, end: 20060915
  2. WARFARIN SODIUM [Concomitant]
     Route: 048
     Dates: start: 20060101, end: 20060915
  3. BROMAZEPAM [Concomitant]
     Route: 048
     Dates: start: 20060101, end: 20060915
  4. LOSARTAN POTASSIUM [Concomitant]
     Route: 048

REACTIONS (1)
  - TUBERCULOSIS [None]
